FAERS Safety Report 10356825 (Version 2)
Quarter: 2014Q3

REPORT INFORMATION
  Report Type: Spontaneous
  Country: FR (occurrence: FR)
  Receive Date: 20140801
  Receipt Date: 20140807
  Transmission Date: 20150326
  Serious: No
  Sender: FDA-Public Use
  Company Number: PHHY2014FR092996

PATIENT
  Age: 82 Year
  Sex: Female

DRUGS (7)
  1. DIFFU K [Concomitant]
     Active Substance: POTASSIUM CHLORIDE
     Dosage: 2 DF, (2 TABLETS) PER DAY
     Dates: start: 201407
  2. CARDENSIEL [Concomitant]
     Active Substance: BISOPROLOL FUMARATE
     Dosage: 2.5 MG, BID
     Dates: start: 201407
  3. COVERSYL                                /FRA/ [Concomitant]
     Active Substance: PERINDOPRIL
     Dosage: 4 MG, QD
     Dates: start: 201407
  4. FEMARA [Suspect]
     Active Substance: LETROZOLE
     Dosage: 2.5 MG (1 DF), DAILY
     Route: 048
     Dates: start: 20140707, end: 20140716
  5. LASILIX [Concomitant]
     Active Substance: FUROSEMIDE
     Dosage: 40 MG, (2 TABLETS/ DAY)
     Dates: start: 201407
  6. DIAMICRON [Concomitant]
     Active Substance: GLICLAZIDE
     Dosage: 1DF IN THE MORNING
     Dates: start: 201407, end: 20140726
  7. FUMAFER [Concomitant]
     Active Substance: FERROUS FUMARATE
     Dosage: 1 DF, (1 TABLET PER DAY)
     Dates: start: 201407

REACTIONS (3)
  - Confusional state [Recovering/Resolving]
  - Visual impairment [Recovering/Resolving]
  - Dizziness [Recovering/Resolving]

NARRATIVE: CASE EVENT DATE: 201407
